FAERS Safety Report 4785154-X (Version None)
Quarter: 2005Q3

REPORT INFORMATION
  Report Type: 
  Country: None (occurrence: None)
  Receive Date: 20050928
  Receipt Date: 20050915
  Transmission Date: 20060218
  Serious: Yes (Disabling, Other)
  Sender: FDA-Public Use
  Company Number: 2004221132GB

PATIENT
  Age: 61 Year
  Sex: Male

DRUGS (11)
  1. NICORETTE [Suspect]
     Indication: SMOKING CESSATION THERAPY
     Dosage: 15 MG, TRANSDERMAL
     Route: 062
     Dates: start: 20031101, end: 20040301
  2. IBUPROFEN [Concomitant]
  3. NASAL PREPARATIONS (NASAL PREPARATIONS) [Concomitant]
  4. ACETAMINOPHEN [Concomitant]
  5. SALBUTAMOL (SALBUTAMOL) [Concomitant]
  6. LOPERAMIDE HCL [Concomitant]
  7. OMEPRAZOLE [Concomitant]
  8. CEPHALEXIN [Concomitant]
  9. DIHYDROCODEINE (DIHYDRCODEINE) [Concomitant]
  10. SALBUTAMOL (SALBUTAMOL) [Concomitant]
  11. FLUNISOLIDE (FLUNISOLIDE) [Concomitant]

REACTIONS (18)
  - APPLICATION SITE PAIN [None]
  - APPLICATION SITE PARAESTHESIA [None]
  - ARTHRALGIA [None]
  - ARTHRITIS [None]
  - BONE PAIN [None]
  - DIFFICULTY IN WALKING [None]
  - DRUG INEFFECTIVE [None]
  - GROIN PAIN [None]
  - INSOMNIA [None]
  - LOCAL SWELLING [None]
  - MOBILITY DECREASED [None]
  - MONOPLEGIA [None]
  - NECK PAIN [None]
  - PAIN IN EXTREMITY [None]
  - SCIATICA [None]
  - SHOULDER PAIN [None]
  - SKIN DISORDER [None]
  - TESTICULAR PAIN [None]
